FAERS Safety Report 7399685-X (Version None)
Quarter: 2011Q1

REPORT INFORMATION
  Report Type: 
  Country: None (occurrence: None)
  Receive Date: 20110330
  Receipt Date: 20110315
  Transmission Date: 20110831
  Serious: Yes (Hospitalization)
  Sender: FDA-Public Use
  Company Number: 2010US000082

PATIENT
  Age: 63 Year
  Sex: Male

DRUGS (1)
  1. ENTEREG [Suspect]
     Indication: POSTOPERATIVE ILEUS
     Dosage: 12 MG; PO
     Route: 048
     Dates: start: 20100917, end: 20100922

REACTIONS (5)
  - WOUND SECRETION [None]
  - ABDOMINAL PAIN [None]
  - ABDOMINAL ABSCESS [None]
  - ANASTOMOTIC LEAK [None]
  - WOUND DEHISCENCE [None]
